FAERS Safety Report 14345306 (Version 1)
Quarter: 2018Q1

REPORT INFORMATION
  Report Type: Spontaneous
  Country: US (occurrence: US)
  Receive Date: 20180103
  Receipt Date: 20180103
  Transmission Date: 20180509
  Serious: No
  Sender: FDA-Public Use
  Company Number: US-LUPIN PHARMACEUTICALS INC.-E2B_00007389

PATIENT
  Sex: Male

DRUGS (1)
  1. RABEPRAZOLE SODIUM DELAYED-RELEASE TABLETS, 20 MG [Suspect]
     Active Substance: RABEPRAZOLE SODIUM
     Indication: GASTROOESOPHAGEAL REFLUX DISEASE
     Dosage: 20 MG,QD,
     Route: 065

REACTIONS (1)
  - Drug ineffective [Unknown]
